FAERS Safety Report 24760011 (Version 1)
Quarter: 2024Q4

REPORT INFORMATION
  Report Type: Spontaneous
  Country: US (occurrence: US)
  Receive Date: 20241220
  Receipt Date: 20241220
  Transmission Date: 20250115
  Serious: No
  Sender: PHARMING GROUP
  Company Number: US-PHARMING-PHAUS2024001226

PATIENT

DRUGS (1)
  1. RUCONEST [Suspect]
     Active Substance: CONESTAT ALFA
     Indication: Hereditary angioedema
     Dosage: 2600 IU, TWICE WEEKLY AND AS NEEDED
     Route: 042
     Dates: start: 202007

REACTIONS (2)
  - Weight decreased [Unknown]
  - Intentional product use issue [Unknown]
